FAERS Safety Report 16803916 (Version 1)
Quarter: 2019Q3

REPORT INFORMATION
  Report Type: Spontaneous
  Country: SE (occurrence: SE)
  Receive Date: 20190913
  Receipt Date: 20190913
  Transmission Date: 20191005
  Serious: Yes (Hospitalization)
  Sender: FDA-Public Use
  Company Number: SE-TEVA-2019-SE-1106087

PATIENT
  Age: 39 Year
  Sex: Male
  Weight: 110 kg

DRUGS (4)
  1. PARACETAMOL [Suspect]
     Active Substance: ACETAMINOPHEN
     Dosage: 10 GRAM
     Route: 048
     Dates: start: 20190508, end: 20190508
  2. LERGIGAN (PROMETHAZINE HYDROCHLORIDE) [Suspect]
     Active Substance: PROMETHAZINE HYDROCHLORIDE
     Dosage: APPROX. 50-60 PCS, APPROX 1500 MG TOTAL
     Route: 048
     Dates: start: 20190508, end: 20190508
  3. ANTABUS [Concomitant]
     Active Substance: DISULFIRAM
  4. DULOXETINE. [Suspect]
     Active Substance: DULOXETINE
     Dosage: 60 PCS APPROX 1600 MG TOTAL
     Dates: start: 20190508, end: 20190508

REACTIONS (2)
  - Intentional overdose [Unknown]
  - Intentional self-injury [Unknown]

NARRATIVE: CASE EVENT DATE: 20190508
